FAERS Safety Report 17499742 (Version 1)
Quarter: 2020Q1

REPORT INFORMATION
  Report Type: Spontaneous
  Country: US (occurrence: US)
  Receive Date: 20200304
  Receipt Date: 20200304
  Transmission Date: 20200409
  Serious: No
  Sender: FDA-Public Use
  Company Number: US-BEH-2020113847

PATIENT
  Age: 63 Year
  Sex: Female

DRUGS (3)
  1. HIZENTRA [Suspect]
     Active Substance: HUMAN IMMUNOGLOBULIN G
     Dosage: 14 GRAM, TOT
     Route: 065
     Dates: start: 20200213, end: 20200213
  2. HIZENTRA [Suspect]
     Active Substance: HUMAN IMMUNOGLOBULIN G
     Dosage: 14 GRAM, QW
     Route: 065
     Dates: start: 2016
  3. HIZENTRA [Suspect]
     Active Substance: HUMAN IMMUNOGLOBULIN G
     Dosage: 14 GRAM, TOT
     Route: 065
     Dates: start: 20200220, end: 20200220

REACTIONS (4)
  - Infusion site infection [Recovered/Resolved]
  - Infusion site haemorrhage [Unknown]
  - Infusion site infection [Unknown]
  - Infusion site infection [Unknown]

NARRATIVE: CASE EVENT DATE: 201911
